FAERS Safety Report 20258467 (Version 1)
Quarter: 2021Q4

REPORT INFORMATION
  Report Type: Other
  Country: BR (occurrence: None)
  Receive Date: 20211230
  Receipt Date: 20211230
  Transmission Date: 20220303
  Serious: No
  Sender: FDA-Public Use
  Company Number: BR-ROCHE-2877208

PATIENT
  Sex: Female
  Weight: 87 kg

DRUGS (5)
  1. OCREVUS [Suspect]
     Active Substance: OCRELIZUMAB
     Indication: Multiple sclerosis
     Dosage: 300 MG/10 ML?SECOND DOSE OF OCREVUS GIVEN ON 30/APR/2021.
     Route: 042
     Dates: start: 202010
  2. MODAFINIL [Concomitant]
     Active Substance: MODAFINIL
     Indication: Fatigue
     Dosage: 1 TABLET
  3. BACLOFEN [Concomitant]
     Active Substance: BACLOFEN
     Indication: Muscle spasticity
  4. IMIPRA [Concomitant]
     Indication: Depression
  5. OMEPRAZOLE [Concomitant]
     Active Substance: OMEPRAZOLE
     Indication: Gastric disorder

REACTIONS (9)
  - Fatigue [Recovered/Resolved]
  - Sluggishness [Recovered/Resolved]
  - Weight increased [Not Recovered/Not Resolved]
  - Influenza like illness [Recovered/Resolved]
  - Influenza [Recovered/Resolved]
  - Headache [Recovered/Resolved]
  - Pain [Recovered/Resolved]
  - Asthenia [Recovered/Resolved]
  - Migraine [Unknown]
